FAERS Safety Report 6843083-1 (Version None)
Quarter: 2010Q3

REPORT INFORMATION
  Report Type: 
  Country: None (occurrence: None)
  Receive Date: 20100715
  Receipt Date: 20100706
  Transmission Date: 20110219
  Serious: Yes (Hospitalization, Other)
  Sender: FDA-Public Use
  Company Number: CA-BIOGENIDEC-2010BI008452

PATIENT
  Age: 47 Year
  Sex: Female
  Weight: 58 kg

DRUGS (11)
  1. TYSABRI [Suspect]
     Indication: MULTIPLE SCLEROSIS
     Route: 042
     Dates: start: 20080925
  2. MODAFINIL [Concomitant]
  3. CES [Concomitant]
  4. DOMPERIDONE [Concomitant]
  5. ADDERALL XR 10 [Concomitant]
  6. PROZAC [Concomitant]
  7. NAPROXEN [Concomitant]
  8. RABEPRAZOLE SODIUM [Concomitant]
  9. VESICARE [Concomitant]
  10. GABAPENTIN [Concomitant]
  11. TRAZODONE HYDROCHLORIDE [Concomitant]

REACTIONS (1)
  - PSEUDOMEMBRANOUS COLITIS [None]
